FAERS Safety Report 4572449-8 (Version None)
Quarter: 2005Q1

REPORT INFORMATION
  Report Type: 
  Country: None (occurrence: None)
  Receive Date: 20050207
  Receipt Date: 20050201
  Transmission Date: 20050727
  Serious: Yes (Hospitalization)
  Sender: FDA-Public Use
  Company Number: US-BRISTOL-MYERS SQUIBB COMPANY-12846259

PATIENT
  Sex: Male

DRUGS (1)
  1. TEQUIN [Suspect]
     Dates: end: 20041101

REACTIONS (1)
  - BLOOD GLUCOSE DECREASED [None]
